FAERS Safety Report 8618739-0 (Version None)
Quarter: 2012Q3

REPORT INFORMATION
  Report Type: 
  Country: None (occurrence: None)
  Receive Date: 20120815
  Receipt Date: 20120815
  Transmission Date: 20120928
  Serious: Yes (Hospitalization)
  Sender: FDA-Public Use
  Company Number: None

PATIENT
  Age: 50 Year
  Sex: Male
  Weight: 89.9 kg

DRUGS (21)
  1. ACTOS [Concomitant]
  2. COMPAZINE [Concomitant]
  3. LISINOPRIL [Concomitant]
  4. PREDNISONE TAB [Concomitant]
  5. ZOFRAN [Concomitant]
  6. OXALIPLATIN [Suspect]
     Indication: OESOPHAGEAL CARCINOMA
     Dosage: 130 MG/M2 Q 3 WEEKS
     Dates: start: 20110517, end: 20120214
  7. BEVACIZUMAB [Suspect]
     Indication: OESOPHAGEAL CARCINOMA
     Dosage: 7.5 MG/KG Q 3 WEEKS
     Dates: start: 20110517, end: 20120214
  8. RITALIN [Concomitant]
  9. LORAZEPAM [Concomitant]
  10. DEXAMETHASONE [Concomitant]
  11. POTASSIUM CHLORIDE [Concomitant]
  12. PRILOSEC [Concomitant]
  13. TRASTUZUMAB [Suspect]
     Indication: OESOPHAGEAL CARCINOMA
     Dosage: 6 MG/M2 Q 3 WEEKS
     Dates: start: 20110510, end: 20120214
  14. EMEND [Concomitant]
  15. BENTYL [Concomitant]
  16. DTO [Concomitant]
  17. TOPROL-XL [Concomitant]
  18. LOMOTIL [Concomitant]
  19. MORPHINE SULFATE [Concomitant]
  20. CITALOPRAM HYDROBROMIDE [Concomitant]
  21. CAPECITABINE [Suspect]
     Indication: OESOPHAGEAL CARCINOMA
     Dosage: 1000MG BID 2WKS ON, 1 OFF
     Dates: start: 20110517, end: 20120226

REACTIONS (14)
  - BLOOD POTASSIUM ABNORMAL [None]
  - NAUSEA [None]
  - VOMITING [None]
  - DECREASED APPETITE [None]
  - FAILURE TO THRIVE [None]
  - MALNUTRITION [None]
  - BLOOD SODIUM ABNORMAL [None]
  - HYPOALBUMINAEMIA [None]
  - DYSPNOEA [None]
  - BLOOD CALCIUM ABNORMAL [None]
  - PNEUMOTHORAX [None]
  - ODYNOPHAGIA [None]
  - PNEUMOMEDIASTINUM [None]
  - BLOOD MAGNESIUM ABNORMAL [None]
